FAERS Safety Report 26206047 (Version 1)
Quarter: 2025Q4

REPORT INFORMATION
  Report Type: Spontaneous
  Country: EU (occurrence: EU)
  Receive Date: 20251229
  Receipt Date: 20251229
  Transmission Date: 20260118
  Serious: Yes (Life-Threatening, Other)
  Sender: AUROBINDO
  Company Number: EU-URPL-DML-MLP.4401.1.2574.2022

PATIENT
  Age: 70 Year
  Sex: Female

DRUGS (3)
  1. ACETAMINOPHEN [Suspect]
     Active Substance: ACETAMINOPHEN
     Indication: Product used for unknown indication
     Dosage: 4 DOSAGE FORM
     Route: 061
     Dates: start: 20221127, end: 20221127
  2. ESTAZOLAM [Suspect]
     Active Substance: ESTAZOLAM
     Indication: Product used for unknown indication
     Dosage: 28 DOSAGE FORM, UNK
     Route: 061
     Dates: start: 20221127, end: 20221127
  3. ATARAX [Suspect]
     Active Substance: HYDROXYZINE HYDROCHLORIDE
     Indication: Product used for unknown indication
     Dosage: 21 DOSAGE FORM, UNK
     Route: 061
     Dates: start: 20221127, end: 20221127

REACTIONS (2)
  - Suicide attempt [Unknown]
  - Toxicity to various agents [Recovering/Resolving]
